FAERS Safety Report 5138950-3 (Version None)
Quarter: 2006Q4

REPORT INFORMATION
  Report Type: 
  Country: None (occurrence: None)
  Receive Date: 20061030
  Receipt Date: 20060522
  Transmission Date: 20070319
  Serious: No
  Sender: FDA-Public Use
  Company Number: US-GLAXOSMITHKLINE-A0606512A

PATIENT
  Age: 52 Year
  Sex: Male

DRUGS (16)
  1. ADVAIR HFA [Suspect]
     Indication: ASTHMA
     Route: 055
     Dates: start: 20040801
  2. ADVAIR HFA [Suspect]
  3. NITROQUICK [Concomitant]
  4. BACLOFEN [Concomitant]
  5. ZANAFLEX [Concomitant]
  6. LIPITOR [Concomitant]
  7. ZETIA [Concomitant]
  8. MORPHINE SULFATE [Concomitant]
  9. PLAVIX [Concomitant]
  10. IMDUR [Concomitant]
  11. METOPROLOL TARTRATE [Concomitant]
  12. ENALAPRIL MALEATE [Concomitant]
  13. RESTASIS [Concomitant]
  14. ALBUTEROL [Concomitant]
  15. SPIRIVA [Concomitant]
  16. XANAX [Concomitant]

REACTIONS (5)
  - DRUG ADMINISTRATION ERROR [None]
  - DRY MOUTH [None]
  - DYSPNOEA [None]
  - ORAL FUNGAL INFECTION [None]
  - PHARMACEUTICAL PRODUCT COMPLAINT [None]
